FAERS Safety Report 10776175 (Version 1)
Quarter: 2015Q1

REPORT INFORMATION
  Report Type: Spontaneous
  Country: US (occurrence: None)
  Receive Date: 20150205
  Receipt Date: 20150205
  Transmission Date: 20150721
  Serious: Yes (Hospitalization)
  Sender: FDA-Public Use
  Company Number: None

PATIENT
  Age: 89 Year
  Sex: Male
  Weight: 78.6 kg

DRUGS (15)
  1. FLOMAX [Concomitant]
     Active Substance: TAMSULOSIN HYDROCHLORIDE
  2. XARELTO [Suspect]
     Active Substance: RIVAROXABAN
     Indication: ATRIAL FIBRILLATION
     Route: 048
  3. LYCOPENE [Concomitant]
     Active Substance: LYCOPENE
  4. PLAVIX [Suspect]
     Active Substance: CLOPIDOGREL BISULFATE
     Indication: CORONARY ARTERIAL STENT INSERTION
     Route: 048
  5. VIT. D [Concomitant]
  6. ALTACE [Concomitant]
     Active Substance: RAMIPRIL
  7. BACTRIM DS [Concomitant]
     Active Substance: SULFAMETHOXAZOLE\TRIMETHOPRIM
  8. XARELTO [Suspect]
     Active Substance: RIVAROXABAN
     Indication: CORONARY ARTERY DISEASE
     Route: 048
  9. AMIODARONE [Suspect]
     Active Substance: AMIODARONE
     Route: 048
  10. IRON [Concomitant]
     Active Substance: IRON
  11. PROSCAR [Concomitant]
     Active Substance: FINASTERIDE
  12. CRESTOR [Concomitant]
     Active Substance: ROSUVASTATIN CALCIUM
  13. PLAVIX [Suspect]
     Active Substance: CLOPIDOGREL BISULFATE
     Indication: CORONARY ARTERY DISEASE
     Route: 048
  14. ECOTRIN [Suspect]
     Active Substance: ASPIRIN
     Route: 048
  15. NIASPAN [Concomitant]
     Active Substance: NIACIN

REACTIONS (4)
  - Iron deficiency anaemia [None]
  - Diverticulum [None]
  - Gastrointestinal haemorrhage [None]
  - Small intestinal haemorrhage [None]

NARRATIVE: CASE EVENT DATE: 20141021
